FAERS Safety Report 7658751-1 (Version None)
Quarter: 2011Q3

REPORT INFORMATION
  Report Type: 
  Country: None (occurrence: None)
  Receive Date: 20110805
  Receipt Date: 20110801
  Transmission Date: 20111222
  Serious: Yes (Other)
  Sender: FDA-Public Use
  Company Number: CA-PFIZER INC-2011174578

PATIENT
  Age: 73 Year
  Sex: Female

DRUGS (10)
  1. SYNTHROID [Concomitant]
     Indication: HYPOTHYROIDISM
     Dosage: 0.05 MG, UNK
  2. NORVASC [Concomitant]
     Indication: HYPERTENSION
     Dosage: 5 MG, UNK
  3. ARTHROTEC [Suspect]
     Indication: NECK PAIN
  4. DIOVAN [Concomitant]
     Indication: HYPERTENSION
     Dosage: 80 MG, UNK
  5. LIPITOR [Concomitant]
     Indication: BLOOD CHOLESTEROL INCREASED
     Dosage: 20 MG, UNK
  6. ACTONEL [Concomitant]
     Indication: OSTEOPOROSIS
     Dosage: ONCE A WEEK
  7. ARTHROTEC [Suspect]
     Indication: MUSCULOSKELETAL PAIN
     Dosage: 75 MG, UNK
     Dates: start: 20110731, end: 20110801
  8. ADVIL LIQUI-GELS [Suspect]
     Indication: MUSCULOSKELETAL PAIN
     Dosage: 2 DF, 3X/DAY
     Dates: start: 20110701
  9. ADVIL LIQUI-GELS [Suspect]
     Indication: NECK PAIN
  10. DIAZIDE [Concomitant]
     Indication: HYPERTENSION
     Dosage: UNK

REACTIONS (3)
  - ABDOMINAL PAIN UPPER [None]
  - BACK PAIN [None]
  - BLOOD CREATININE INCREASED [None]
